FAERS Safety Report 8896182 (Version 1)
Quarter: 2012Q4

REPORT INFORMATION
  Report Type: 
  Country: CA (occurrence: CA)
  Receive Date: 20121108
  Receipt Date: 20121108
  Transmission Date: 20130627
  Serious: Yes (Death, Hospitalization, Other)
  Sender: FDA-Public Use
  Company Number: CA-PURDUE-CAN-2012-0003483

PATIENT
  Age: 73 Year
  Sex: Female
  Weight: 53.97 kg

DRUGS (2)
  1. OXYCONTIN [Suspect]
     Indication: PRODUCT USED FOR UNKNOWN INDICATION
     Dosage: 2 tablet, daily
     Route: 048
  2. OXYCODONE / ACETAMINOPHEN [Suspect]
     Indication: PRODUCT USED FOR UNKNOWN INDICATION
     Dosage: 3 UNK, daily
     Route: 048

REACTIONS (4)
  - Intestinal perforation [Fatal]
  - Intestinal obstruction [Fatal]
  - Abdominal pain lower [Fatal]
  - Constipation [Fatal]
